FAERS Safety Report 10688524 (Version 3)
Quarter: 2015Q2

REPORT INFORMATION
  Report Type: Spontaneous
  Country: US (occurrence: None)
  Receive Date: 20141231
  Receipt Date: 20150520
  Transmission Date: 20150821
  Serious: Yes (Death)
  Sender: FDA-Public Use
  Company Number: 1713747-2014-999233

PATIENT
  Age: 82 Year
  Sex: Female

DRUGS (6)
  1. FRESENIUS K@HOME HEMODIALYSIS DEVICE [Concomitant]
     Active Substance: DEVICE
  2. NATURALTYE [Concomitant]
  3. NATURALYTE LIQUID BICARBONATE [Concomitant]
  4. 0.9% SODIUM CHLORIDE INJECTION, USP IN MINI-BAG PLUS CONTAINER [Suspect]
     Active Substance: SODIUM CHLORIDE
     Indication: NEPHROPATHY
     Route: 010
     Dates: start: 20141215
  5. OPTIFLUX DIALYZER [Concomitant]
     Active Substance: DEVICE
  6. HOME HEMO COMBISET [Concomitant]

REACTIONS (2)
  - Pulse absent [None]
  - Blood pressure immeasurable [None]

NARRATIVE: CASE EVENT DATE: 20141215
